FAERS Safety Report 4992788-6 (Version None)
Quarter: 2006Q1

REPORT INFORMATION
  Report Type: 
  Country: None (occurrence: None)
  Receive Date: 20060313
  Receipt Date: 20051207
  Transmission Date: 20060701
  Serious: No
  Sender: FDA-Public Use
  Company Number: 2005-BP-06947BP

PATIENT
  Sex: Female

DRUGS (3)
  1. SPIRIVA [Suspect]
     Indication: CHRONIC OBSTRUCTIVE PULMONARY DISEASE
     Dosage: 18 MCG(18 MCG QD),IH
     Dates: start: 20050201
  2. SPIRIVA [Suspect]
  3. PLAVIX [Concomitant]

REACTIONS (2)
  - DYSPNOEA [None]
  - WHEEZING [None]
